FAERS Safety Report 25910596 (Version 1)
Quarter: 2025Q4

REPORT INFORMATION
  Report Type: Spontaneous
  Country: AU (occurrence: AU)
  Receive Date: 20251013
  Receipt Date: 20251013
  Transmission Date: 20260118
  Serious: Yes (Other)
  Sender: BAUSCH AND LOMB
  Company Number: AU-BAUSCHBL-2025BNL029701

PATIENT
  Age: 40 Year
  Sex: Female

DRUGS (1)
  1. PREDNISOLONE [Suspect]
     Active Substance: PREDNISOLONE
     Indication: Product used for unknown indication

REACTIONS (6)
  - Condition aggravated [Unknown]
  - Hepatic function abnormal [Unknown]
  - Increased tendency to bruise [Unknown]
  - Skin atrophy [Unknown]
  - Weight increased [Unknown]
  - Drug ineffective for unapproved indication [Unknown]
